FAERS Safety Report 6552535-3 (Version None)
Quarter: 2010Q1

REPORT INFORMATION
  Report Type: 
  Country: None (occurrence: None)
  Receive Date: 20100126
  Receipt Date: 20100119
  Transmission Date: 20100710
  Serious: Yes (Other)
  Sender: FDA-Public Use
  Company Number: US-PFIZER INC-2010007986

PATIENT
  Sex: Male
  Weight: 70.295 kg

DRUGS (4)
  1. VIAGRA [Suspect]
     Dosage: UNK
     Route: 048
  2. AMLODIPINE [Concomitant]
     Indication: BLOOD PRESSURE
     Dosage: 10 MG, 1X/DAY
     Route: 048
  3. FAMOTIDINE [Concomitant]
     Indication: GASTROOESOPHAGEAL REFLUX DISEASE
     Dosage: 40 MG, 1X/DAY
     Route: 048
  4. CLONAZEPAM [Concomitant]
     Indication: DEPRESSION
     Dosage: 1 MG, 2X/DAY
     Route: 048

REACTIONS (4)
  - ASTHENOPIA [None]
  - BLINDNESS [None]
  - DEAFNESS [None]
  - MUSCLE TWITCHING [None]
